FAERS Safety Report 12439325 (Version 1)
Quarter: 2016Q2

REPORT INFORMATION
  Report Type: Spontaneous
  Country: DK (occurrence: DK)
  Receive Date: 20160606
  Receipt Date: 20160606
  Transmission Date: 20160815
  Serious: Yes (Hospitalization, Other)
  Sender: FDA-Public Use
  Company Number: DK-GLAXOSMITHKLINE-DK2016GSK080355

PATIENT
  Age: 73 Year
  Sex: Female

DRUGS (1)
  1. SALBUTAMOL [Suspect]
     Active Substance: ALBUTEROL
     Indication: PRODUCT USED FOR UNKNOWN INDICATION
     Route: 055

REACTIONS (12)
  - Electrocardiogram ST segment abnormal [Unknown]
  - Bundle branch block right [Unknown]
  - Diastolic dysfunction [Unknown]
  - Stress cardiomyopathy [Recovered/Resolved]
  - Overdose [Unknown]
  - Palpitations [Unknown]
  - Troponin I increased [Unknown]
  - Angina pectoris [Unknown]
  - Sinus tachycardia [Unknown]
  - Electrocardiogram Q wave abnormal [Unknown]
  - Ventricular hypokinesia [Unknown]
  - Dyspnoea [Unknown]
